FAERS Safety Report 10676569 (Version 5)
Quarter: 2015Q1

REPORT INFORMATION
  Report Type: Spontaneous
  Country: JP (occurrence: JP)
  Receive Date: 20141226
  Receipt Date: 20150313
  Transmission Date: 20150720
  Serious: Yes (Death, Hospitalization, Other)
  Sender: FDA-Public Use
  Company Number: PHHY2014JP168294

PATIENT
  Age: 80 Year
  Sex: Male

DRUGS (10)
  1. BICALUTAMIDE. [Suspect]
     Active Substance: BICALUTAMIDE
     Indication: PROSTATE CANCER
     Route: 065
     Dates: start: 201109
  2. DOCETAXEL. [Suspect]
     Active Substance: DOCETAXEL
     Dosage: 60 MG, UNK
     Route: 065
  3. DOCETAXEL. [Suspect]
     Active Substance: DOCETAXEL
     Dosage: 45 MG, UNK
     Route: 065
  4. ZOLEDRONATE [Suspect]
     Active Substance: ZOLEDRONIC ACID
     Indication: PROSTATE CANCER
  5. ZOLEDRONATE [Suspect]
     Active Substance: ZOLEDRONIC ACID
     Indication: METASTATIC PAIN
     Dosage: 4 MG, UNK
     Route: 041
     Dates: start: 201302
  6. LEUPRORELIN [Suspect]
     Active Substance: LEUPROLIDE ACETATE
     Indication: PROSTATE CANCER
     Route: 065
     Dates: start: 201109
  7. DOCETAXEL. [Suspect]
     Active Substance: DOCETAXEL
     Indication: PROSTATE CANCER
     Dosage: 80 MG, UNK
     Route: 065
     Dates: start: 201208
  8. DEXAMETHASONE. [Suspect]
     Active Substance: DEXAMETHASONE
     Indication: PROSTATE CANCER
     Route: 065
     Dates: start: 201205
  9. ESTRAMUSTINE [Suspect]
     Active Substance: ESTRAMUSTINE
     Indication: PROSTATE CANCER
     Route: 065
  10. FLUTAMIDE. [Suspect]
     Active Substance: FLUTAMIDE
     Indication: PROSTATE CANCER
     Route: 065

REACTIONS (10)
  - Pneumonia aspiration [Fatal]
  - Prostatic specific antigen increased [Unknown]
  - Pneumatosis intestinalis [Unknown]
  - Drug resistance [Unknown]
  - Portal venous gas [Unknown]
  - Pyrexia [Recovered/Resolved]
  - Nausea [Unknown]
  - Bone marrow failure [Unknown]
  - Diarrhoea [Unknown]
  - Vomiting [Unknown]

NARRATIVE: CASE EVENT DATE: 201302
